FAERS Safety Report 4503923-8 (Version None)
Quarter: 2004Q4

REPORT INFORMATION
  Report Type: 
  Country: None (occurrence: None)
  Receive Date: 20041115
  Receipt Date: 20041103
  Transmission Date: 20050328
  Serious: No
  Sender: FDA-Public Use
  Company Number: D01200403916

PATIENT
  Age: 40 Year
  Sex: Male

DRUGS (11)
  1. (RASBURICASE) - SOLUTION - 0.2 MG/KG [Suspect]
     Indication: HYPERURICAEMIA
     Dosage: 0.2 MG/KG QD INTRAVENOUS NOS
     Route: 042
     Dates: start: 20040924, end: 20040926
  2. (RASBURICASE) - SOLUTION - 0.2 MG/KG [Suspect]
     Indication: LEUKAEMIA
     Dosage: 0.2 MG/KG QD INTRAVENOUS NOS
     Route: 042
     Dates: start: 20040924, end: 20040926
  3. (RASBURICASE) - SOLUTION - 0.2 MG/KG [Suspect]
     Indication: NEOPLASM MALIGNANT
     Dosage: 0.2 MG/KG QD INTRAVENOUS NOS
     Route: 042
     Dates: start: 20040924, end: 20040926
  4. DECADRON [Concomitant]
  5. ONDANSETRON [Concomitant]
  6. PROCHLORPERAZINE [Concomitant]
  7. CYTARABINE [Concomitant]
  8. MITOXANTRONE [Concomitant]
  9. FUROSEMIDE [Concomitant]
  10. ZOLPIDEM [Concomitant]
  11. CEFTAZIDIME [Concomitant]

REACTIONS (2)
  - ASPARTATE AMINOTRANSFERASE INCREASED [None]
  - BLOOD LACTATE DEHYDROGENASE INCREASED [None]
